FAERS Safety Report 13455018 (Version 4)
Quarter: 2017Q2

REPORT INFORMATION
  Report Type: Report from Study
  Country: BE (occurrence: BE)
  Receive Date: 20170419
  Receipt Date: 20170628
  Transmission Date: 20170830
  Serious: Yes (Hospitalization)
  Sender: FDA-Public Use
  Company Number: BE-EISAI MEDICAL RESEARCH-EC-2017-025606

PATIENT
  Age: 38 Year
  Sex: Female

DRUGS (8)
  1. FYCOMPA [Suspect]
     Active Substance: PERAMPANEL
     Route: 048
     Dates: start: 20170116, end: 20170219
  2. VALPROATE SODIUM. [Concomitant]
     Active Substance: VALPROATE SODIUM
  3. FYCOMPA [Suspect]
     Active Substance: PERAMPANEL
     Route: 048
     Dates: start: 20170406, end: 20170412
  4. LAMOTRIGINE. [Concomitant]
     Active Substance: LAMOTRIGINE
  5. FYCOMPA [Suspect]
     Active Substance: PERAMPANEL
     Indication: PARTIAL SEIZURES
     Route: 048
     Dates: start: 20161219, end: 20170115
  6. FYCOMPA [Suspect]
     Active Substance: PERAMPANEL
     Route: 048
     Dates: start: 20170220, end: 20170320
  7. FYCOMPA [Suspect]
     Active Substance: PERAMPANEL
     Route: 048
     Dates: start: 20170321, end: 20170405
  8. CARBAMAZEPINE. [Concomitant]
     Active Substance: CARBAMAZEPINE

REACTIONS (8)
  - Fatigue [Recovering/Resolving]
  - Dizziness [Recovering/Resolving]
  - Paraesthesia [Recovered/Resolved]
  - Tremor [Recovering/Resolving]
  - Balance disorder [Recovering/Resolving]
  - Generalised tonic-clonic seizure [Recovered/Resolved]
  - Muscle spasms [Not Recovered/Not Resolved]
  - Diplopia [Recovered/Resolved]

NARRATIVE: CASE EVENT DATE: 20170104
